FAERS Safety Report 21229362 (Version 3)
Quarter: 2022Q3

REPORT INFORMATION
  Report Type: Report from Study
  Country: DE (occurrence: None)
  Receive Date: 20220818
  Receipt Date: 20220921
  Transmission Date: 20221026
  Serious: Yes (Hospitalization)
  Sender: FDA-Public Use
  Company Number: DE-ROCHE-3160528

PATIENT
  Age: 73 Year
  Sex: Female
  Weight: 65 kg

DRUGS (5)
  1. ATEZOLIZUMAB [Suspect]
     Active Substance: ATEZOLIZUMAB
     Indication: Ovarian cancer recurrent
     Dosage: DATE OF LAST DOSE PRIOR TO SAE 03/AUG/2022
     Route: 042
     Dates: start: 20220217
  2. BEVACIZUMAB [Suspect]
     Active Substance: BEVACIZUMAB
     Indication: Ovarian cancer recurrent
     Dosage: DATE OF LAST DOSE PRIOR TO SAE 03/AUG/2022
     Route: 042
     Dates: start: 20220217
  3. PACLITAXEL [Suspect]
     Active Substance: PACLITAXEL
     Indication: Ovarian cancer recurrent
     Dosage: DATE OF LAST DOSE PRIOR TO SAE 03/AUG/2022
     Route: 042
     Dates: start: 20220217
  4. APIXABAN [Concomitant]
     Active Substance: APIXABAN
     Indication: Device related thrombosis
     Route: 048
     Dates: start: 20220608
  5. ENALAPRIL [Concomitant]
     Active Substance: ENALAPRIL
     Indication: Hypertension
     Route: 048
     Dates: start: 2002

REACTIONS (1)
  - General physical health deterioration [Recovering/Resolving]

NARRATIVE: CASE EVENT DATE: 20220811
